FAERS Safety Report 9812460 (Version 2)
Quarter: 2014Q1

REPORT INFORMATION
  Report Type: Spontaneous
  Country: US (occurrence: US)
  Receive Date: 20140113
  Receipt Date: 20140217
  Transmission Date: 20141002
  Serious: No
  Sender: FDA-Public Use
  Company Number: US-BIOGENIDEC-2014BI003132

PATIENT
  Sex: Female

DRUGS (1)
  1. TYSABRI [Suspect]
     Indication: MULTIPLE SCLEROSIS
     Route: 042
     Dates: start: 20090714, end: 20130919

REACTIONS (3)
  - Infusion site scar [Recovered/Resolved]
  - Pain in extremity [Not Recovered/Not Resolved]
  - Infusion site pain [Recovered/Resolved]
